FAERS Safety Report 5941325-8 (Version None)
Quarter: 2008Q4

REPORT INFORMATION
  Report Type: 
  Country: None (occurrence: None)
  Receive Date: 20081105
  Receipt Date: 20081024
  Transmission Date: 20090506
  Serious: Yes (Hospitalization)
  Sender: FDA-Public Use
  Company Number: JP-JNJFOC-20070706755

PATIENT
  Sex: Female
  Weight: 60 kg

DRUGS (44)
  1. REMICADE [Suspect]
     Route: 042
  2. REMICADE [Suspect]
     Route: 042
  3. REMICADE [Suspect]
     Route: 042
  4. REMICADE [Suspect]
     Route: 042
  5. REMICADE [Suspect]
     Route: 042
  6. REMICADE [Suspect]
     Route: 042
  7. REMICADE [Suspect]
     Route: 042
  8. REMICADE [Suspect]
     Route: 042
  9. REMICADE [Suspect]
     Route: 042
  10. REMICADE [Suspect]
     Route: 042
  11. REMICADE [Suspect]
     Indication: RHEUMATOID ARTHRITIS
     Route: 042
  12. METHOTREXATE [Concomitant]
     Route: 048
  13. METHOTREXATE [Concomitant]
     Indication: RHEUMATOID ARTHRITIS
     Route: 048
  14. PREDONINE [Concomitant]
     Route: 048
  15. PREDONINE [Concomitant]
     Route: 048
  16. PREDONINE [Concomitant]
     Route: 048
  17. PREDONINE [Concomitant]
     Route: 048
  18. ISONIAZID [Concomitant]
     Route: 048
  19. ISONIAZID [Concomitant]
     Indication: ANTIBIOTIC PROPHYLAXIS
     Route: 048
  20. ANTIHISTAMINES [Concomitant]
  21. ANTIHISTAMINES [Concomitant]
  22. ANTIHISTAMINES [Concomitant]
  23. ANTIHISTAMINES [Concomitant]
  24. ANTIHISTAMINES [Concomitant]
  25. ANTIHISTAMINES [Concomitant]
  26. ANTIHISTAMINES [Concomitant]
  27. ANTIHISTAMINES [Concomitant]
  28. ANTIHISTAMINES [Concomitant]
  29. ANTIHISTAMINES [Concomitant]
  30. ANTIHISTAMINES [Concomitant]
     Indication: PROPHYLAXIS
  31. ACETAMINOPHEN [Concomitant]
  32. ACETAMINOPHEN [Concomitant]
  33. ACETAMINOPHEN [Concomitant]
  34. ACETAMINOPHEN [Concomitant]
  35. ACETAMINOPHEN [Concomitant]
  36. ACETAMINOPHEN [Concomitant]
  37. ACETAMINOPHEN [Concomitant]
  38. ACETAMINOPHEN [Concomitant]
  39. ACETAMINOPHEN [Concomitant]
  40. ACETAMINOPHEN [Concomitant]
  41. ACETAMINOPHEN [Concomitant]
     Indication: PROPHYLAXIS
  42. LOXONIN [Concomitant]
     Indication: RHEUMATOID ARTHRITIS
     Route: 048
  43. ACTONEL [Concomitant]
     Indication: RHEUMATOID ARTHRITIS
     Route: 048
  44. ADRENAL HORMONE PREPARATIONS [Concomitant]
     Indication: RHEUMATOID ARTHRITIS

REACTIONS (3)
  - HEADACHE [None]
  - HYPOXIA [None]
  - VOMITING [None]
